FAERS Safety Report 7576363-5 (Version None)
Quarter: 2011Q2

REPORT INFORMATION
  Report Type: 
  Country: None (occurrence: None)
  Receive Date: 20110628
  Receipt Date: 20110128
  Transmission Date: 20111010
  Serious: Yes (Other)
  Sender: FDA-Public Use
  Company Number: US-BAYER-201036214NA

PATIENT
  Age: 29 Year
  Sex: Female
  Weight: 90.703 kg

DRUGS (7)
  1. PREVACID [Concomitant]
     Dosage: 15 MG, UNK
     Route: 048
  2. IMITREX [Concomitant]
     Dosage: 100 MG, UNK
     Route: 048
  3. PROAIR HFA [Concomitant]
     Indication: DYSPNOEA
     Dosage: UNK
     Dates: start: 20080101
  4. YAZ [Suspect]
     Indication: CONTRACEPTION
     Dates: start: 20060101
  5. TREXIMET [Concomitant]
     Dosage: 25 MG/HOUR OF SLEEP
  6. UNISOM [Concomitant]
  7. VERPAMIL HCL [Concomitant]
     Dosage: 120 MG, QD

REACTIONS (2)
  - GALLBLADDER DISORDER [None]
  - BILIARY DYSKINESIA [None]
